FAERS Safety Report 5407284-1 (Version None)
Quarter: 2007Q3

REPORT INFORMATION
  Report Type: 
  Country: None (occurrence: None)
  Receive Date: 20070807
  Receipt Date: 20070802
  Transmission Date: 20080115
  Serious: Yes (Hospitalization)
  Sender: FDA-Public Use
  Company Number: FR-ELI_LILLY_AND_COMPANY-FR200708000301

PATIENT
  Age: 86 Year
  Sex: Female

DRUGS (9)
  1. ZYPREXA [Suspect]
     Dosage: 5 MG, DAILY (1/D)
     Route: 048
     Dates: end: 20070216
  2. TAVANIC [Concomitant]
     Indication: BRONCHITIS
     Dosage: 500 MG, DAILY (1/D)
     Route: 048
     Dates: start: 20070209, end: 20070216
  3. SEROPLEX [Concomitant]
     Dosage: 1 MG, DAILY (1/D)
     Route: 048
     Dates: end: 20070216
  4. ALPRAZOLAM [Concomitant]
     Dosage: 0.5 MG, DAILY (1/D)
     Route: 048
     Dates: end: 20070216
  5. ZAMUDOL [Concomitant]
     Dosage: 50 MG, 4/W
     Dates: start: 20070112, end: 20070216
  6. LEPTICUR [Concomitant]
     Dosage: 20 MG, DAILY (1/D)
     Route: 048
  7. FUROSEMIDE [Concomitant]
     Dosage: 20 MG, DAILY (1/D)
     Route: 048
  8. ACETAMINOPHEN [Concomitant]
     Route: 048
  9. MACROGOL [Concomitant]

REACTIONS (2)
  - DISTURBANCE IN ATTENTION [None]
  - FALL [None]
